FAERS Safety Report 8033387-1 (Version None)
Quarter: 2012Q1

REPORT INFORMATION
  Report Type: 
  Country: None (occurrence: None)
  Receive Date: 20120110
  Receipt Date: 20120105
  Transmission Date: 20120608
  Serious: Yes (Hospitalization)
  Sender: FDA-Public Use
  Company Number: PHEH2012US000844

PATIENT
  Sex: Male

DRUGS (1)
  1. EXJADE [Suspect]
     Indication: REFRACTORY ANAEMIA
     Dosage: 1000 MG, QD
     Route: 048

REACTIONS (1)
  - BACTERIAL INFECTION [None]
